FAERS Safety Report 12105514 (Version 3)
Quarter: 2016Q1

REPORT INFORMATION
  Report Type: Spontaneous
  Country: FR (occurrence: FR)
  Receive Date: 20160223
  Receipt Date: 20160304
  Transmission Date: 20160526
  Serious: Yes (Death, Hospitalization, Other)
  Sender: FDA-Public Use
  Company Number: FR-PFIZER INC-2016099975

PATIENT
  Age: 46 Year
  Sex: Female

DRUGS (19)
  1. VIREAD [Suspect]
     Active Substance: TENOFOVIR DISOPROXIL FUMARATE
     Indication: CHRONIC HEPATITIS B
     Dosage: 245 MG, 1X/DAY
     Route: 048
     Dates: start: 2015
  2. PRIMPERAN [Suspect]
     Active Substance: METOCLOPRAMIDE HYDROCHLORIDE
     Indication: NAUSEA
     Dosage: AS NEEDED, UP TO THRICE DAILY (MAX 6 DF DAILY)
     Route: 048
     Dates: start: 201505
  3. LUTENYL [Suspect]
     Active Substance: NOMEGESTROL ACETATE
     Dosage: 5 MG, 2X/DAY
     Route: 048
     Dates: start: 201505, end: 20151130
  4. WELLVONE [Suspect]
     Active Substance: ATOVAQUONE
     Dosage: 5 ML, 2X/DAY (EVERY DAY IN THE MORNING AND ON THE EVENING)
     Route: 048
     Dates: start: 201505, end: 20160125
  5. DELURSAN [Suspect]
     Active Substance: URSODIOL
     Dosage: 250 MG, 4X/DAY ((250 MG TWICE IN THE MORNING AND 250 MG TWICE ON THE EVENING)
     Route: 048
     Dates: start: 201505
  6. CERAT INALTERABLE [Concomitant]
     Dosage: UNK, 2X/DAY (ONE APPLICATION IN THE MORNING AND ONE ON THE EVENING)
     Dates: start: 201511
  7. FORTUM /00559701/ [Concomitant]
     Active Substance: CEFTAZIDIME
     Dosage: 1 G, 3X/DAY
  8. TIORFAN [Suspect]
     Active Substance: RACECADOTRIL
     Indication: DIARRHOEA
     Dosage: 100 MG, AS NEEDED (UP TO THRICE DAILY)
     Route: 048
     Dates: start: 201505
  9. VISMED [Concomitant]
     Indication: DRY EYE
     Dosage: 1 GTT, AS NEEDED
     Route: 047
  10. ORACILLINE /00001801/ [Suspect]
     Active Substance: PENICILLIN V
     Dosage: 1 MILLION IU, 2X/DAY
     Route: 048
     Dates: start: 20151127
  11. CONTRAMAL [Suspect]
     Active Substance: TRAMADOL HYDROCHLORIDE
     Indication: PAIN
     Dosage: 50 MG, AS NEEDED (MAX 6 DF DAILY)
     Route: 048
     Dates: start: 201505
  12. VALACICLOVIR [Suspect]
     Active Substance: VALACYCLOVIR HYDROCHLORIDE
     Dosage: 500 MG, 2X/DAY
     Route: 048
     Dates: start: 201507, end: 20160125
  13. SMOFKABIVEN [Suspect]
     Active Substance: UNSPECIFIED INGREDIENT
     Indication: DECREASED APPETITE
     Dosage: 986 ML, 1X/DAY (DURING THE NIGHT)
     Route: 042
     Dates: start: 20151113
  14. MAGNE B6 /00869101/ [Concomitant]
     Dosage: 2 DF, 2X/DAY (AT TWO DOSAGE FORM THE MORNING AND TWO ON THE EVENING DAILY)
     Route: 048
  15. VFEND [Suspect]
     Active Substance: VORICONAZOLE
     Dosage: 200 MG, 2X/DAY (EVERY DAY IN THE MORNING AND ON THE EVENING)
     Route: 048
     Dates: start: 201506, end: 20151130
  16. DIPROSONE [Concomitant]
     Active Substance: BETAMETHASONE DIPROPIONATE
     Indication: ACUTE GRAFT VERSUS HOST DISEASE
     Dosage: 0.05 %, UNK
     Route: 003
     Dates: start: 20151103
  17. UNILARM [Concomitant]
     Dosage: 1 GTT, UNK
  18. EUPANTOL [Suspect]
     Active Substance: PANTOPRAZOLE SODIUM
     Dosage: 20 MG, 1X/DAY (DAILY ON THE EVENING)
     Route: 048
     Dates: start: 201505
  19. ZYVOXID [Concomitant]
     Active Substance: LINEZOLID
     Dosage: UNK

REACTIONS (1)
  - Hepatitis fulminant [Fatal]

NARRATIVE: CASE EVENT DATE: 20151130
